FAERS Safety Report 18757614 (Version 1)
Quarter: 2021Q1

REPORT INFORMATION
  Report Type: Spontaneous
  Country: SA (occurrence: SA)
  Receive Date: 20210119
  Receipt Date: 20210119
  Transmission Date: 20210419
  Serious: Yes (Death, Other)
  Sender: FDA-Public Use
  Company Number: SA-AMGEN-SAUSP2021005519

PATIENT

DRUGS (5)
  1. ALFACALCIDOL [Concomitant]
     Active Substance: ALFACALCIDOL
  2. SEVELAMER HCL [Concomitant]
     Active Substance: SEVELAMER HYDROCHLORIDE
  3. CALCIUM CARBONATE. [Concomitant]
     Active Substance: CALCIUM CARBONATE
  4. CHOLECALCIFEROL [Concomitant]
     Active Substance: CHOLECALCIFEROL
  5. CINACALCET HCL [Suspect]
     Active Substance: CINACALCET HYDROCHLORIDE
     Indication: HYPERPARATHYROIDISM SECONDARY
     Dosage: UNK
     Route: 065

REACTIONS (2)
  - Chronic kidney disease [Fatal]
  - Sepsis [Fatal]
